FAERS Safety Report 4484986-5 (Version None)
Quarter: 2004Q3

REPORT INFORMATION
  Report Type: 
  Country: None (occurrence: None)
  Receive Date: 20040921
  Receipt Date: 20030919
  Transmission Date: 20050211
  Serious: Yes (Other)
  Sender: FDA-Public Use
  Company Number: 163-20785-03090600

PATIENT
  Sex: Female

DRUGS (2)
  1. THALOMID [Suspect]
     Indication: DRUG USE FOR UNKNOWN INDICATION
  2. ASPIRIN (ACETYLSALICYLIC) [Concomitant]

REACTIONS (1)
  - PULMONARY EMBOLISM [None]
